FAERS Safety Report 14531363 (Version 2)
Quarter: 2018Q2

REPORT INFORMATION
  Report Type: Spontaneous
  Country: JP (occurrence: JP)
  Receive Date: 20180214
  Receipt Date: 20180417
  Transmission Date: 20180711
  Serious: Yes (Life-Threatening, Disabling)
  Sender: FDA-Public Use
  Company Number: JP-CELGENEUS-JPN-20180105677

PATIENT
  Age: 65 Year
  Sex: Male
  Weight: 102 kg

DRUGS (2)
  1. ABRAXANE [Suspect]
     Active Substance: PACLITAXEL
     Indication: PANCREATIC CARCINOMA METASTATIC
     Dosage: 200 MILLIGRAM
     Route: 041
     Dates: start: 20170329, end: 20170927
  2. GEMCITABINE [Suspect]
     Active Substance: GEMCITABINE\GEMCITABINE HYDROCHLORIDE
     Indication: PANCREATIC CARCINOMA METASTATIC
     Dosage: 2000 MILLIGRAM
     Route: 041
     Dates: start: 20170329, end: 20170927

REACTIONS (2)
  - Myelodysplastic syndrome [Unknown]
  - Pancytopenia [Not Recovered/Not Resolved]

NARRATIVE: CASE EVENT DATE: 20171115
